FAERS Safety Report 10005430 (Version 1)
Quarter: 2014Q1

REPORT INFORMATION
  Report Type: Report from Study
  Country: US (occurrence: US)
  Receive Date: 20140313
  Receipt Date: 20140313
  Transmission Date: 20141002
  Serious: Yes (Hospitalization, Other)
  Sender: FDA-Public Use
  Company Number: US-ROCHE-1359715

PATIENT
  Age: 51 Year
  Sex: Female

DRUGS (14)
  1. XOLAIR [Suspect]
     Indication: ASTHMA
     Route: 058
  2. SEROQUEL XR [Concomitant]
     Route: 065
  3. SINGULAIR [Concomitant]
     Route: 048
     Dates: start: 20131126
  4. PROVENTIL HFA [Concomitant]
     Route: 065
     Dates: start: 20131213
  5. DULERA [Concomitant]
     Route: 065
  6. AVELOX [Concomitant]
     Route: 048
  7. AZITHROMYCIN [Concomitant]
     Route: 048
  8. CHLORTHALIDONE [Concomitant]
     Route: 048
  9. EPIPEN 2-PAK [Concomitant]
  10. LEVAQUIN [Concomitant]
     Route: 048
  11. LEVOTHYROXINE [Concomitant]
  12. MECLIZINE [Concomitant]
     Route: 048
  13. PROMETHAZINE [Concomitant]
  14. MUCINEX DM [Concomitant]
     Route: 048

REACTIONS (23)
  - Vomiting [Unknown]
  - Breast cancer [Unknown]
  - Gastrointestinal toxicity [Unknown]
  - Endometriosis [Unknown]
  - Myxoedema [Unknown]
  - Gastroenteritis [Recovering/Resolving]
  - Pneumonia bacterial [Unknown]
  - Cough [Unknown]
  - Diarrhoea [Unknown]
  - Abdominal pain [Unknown]
  - Chronic obstructive pulmonary disease [Unknown]
  - Hypercholesterolaemia [Unknown]
  - Hypertension [Unknown]
  - Acute sinusitis [Unknown]
  - Rhinitis allergic [Unknown]
  - Hypersensitivity [Unknown]
  - Anxiety [Unknown]
  - Asthma [Unknown]
  - Bronchitis [Unknown]
  - Upper-airway cough syndrome [Unknown]
  - Ligament sprain [Unknown]
  - Umbilical hernia [Unknown]
  - Influenza [Unknown]
